FAERS Safety Report 5419191-9 (Version None)
Quarter: 2007Q3

REPORT INFORMATION
  Report Type: 
  Country: None (occurrence: None)
  Receive Date: 20070815
  Receipt Date: 20070815
  Transmission Date: 20080115
  Serious: Yes (Hospitalization)
  Sender: FDA-Public Use
  Company Number: None

PATIENT
  Sex: Male
  Weight: 90.3 kg

DRUGS (1)
  1. TAXOTERE [Suspect]
     Dosage: 158 MG

REACTIONS (6)
  - BLOOD CULTURE POSITIVE [None]
  - DIARRHOEA [None]
  - DIVERTICULITIS [None]
  - ESCHERICHIA INFECTION [None]
  - NEUTROPENIA [None]
  - PYREXIA [None]
